FAERS Safety Report 9025500 (Version 1)
Quarter: 2013Q1

REPORT INFORMATION
  Report Type: Report from Study
  Country: FR (occurrence: FR)
  Receive Date: 20130122
  Receipt Date: 20130122
  Transmission Date: 20140127
  Serious: Yes (Hospitalization, Other)
  Sender: FDA-Public Use
  Company Number: FR-BAXTER-2013BAX002186

PATIENT
  Age: 14 Year
  Sex: Female
  Weight: 37.5 kg

DRUGS (5)
  1. HOLOXAN 2000 MG, POUDRE POUR USAGE PARENT?RAL [Suspect]
     Indication: SARCOMA METASTATIC
     Route: 042
     Dates: start: 20110302
  2. BEVACIZUMAB [Suspect]
     Indication: SARCOMA METASTATIC
     Route: 042
     Dates: start: 20110302
  3. VINCRISTINE [Suspect]
     Indication: SARCOMA METASTATIC
     Route: 042
     Dates: start: 20110302
  4. ACTINOMYCIN D [Suspect]
     Indication: SARCOMA METASTATIC
     Route: 042
     Dates: start: 20110302
  5. DOXORUBICIN [Suspect]
     Indication: SARCOMA METASTATIC
     Route: 042
     Dates: start: 20110302

REACTIONS (11)
  - Febrile bone marrow aplasia [Recovered/Resolved]
  - Mucosal inflammation [Recovered/Resolved]
  - Febrile neutropenia [Recovered/Resolved]
  - Vomiting [Recovered/Resolved]
  - Weight decreased [Unknown]
  - Febrile bone marrow aplasia [Recovered/Resolved]
  - Mucosal inflammation [Recovered/Resolved]
  - Febrile neutropenia [Recovered/Resolved]
  - Febrile neutropenia [Recovered/Resolved]
  - Febrile neutropenia [Recovered/Resolved]
  - Febrile neutropenia [Recovered/Resolved]
